FAERS Safety Report 9499716 (Version 1)
Quarter: 2013Q3

REPORT INFORMATION
  Report Type: Spontaneous
  Country: US (occurrence: None)
  Receive Date: 20130903
  Receipt Date: 20130903
  Transmission Date: 20140515
  Serious: Yes (Other)
  Sender: FDA-Public Use
  Company Number: None

PATIENT
  Sex: Male
  Weight: 84.82 kg

DRUGS (2)
  1. AZITHROMYCIN [Suspect]
     Route: 048
  2. SIMVASTATIN [Suspect]
     Indication: UPPER RESPIRATORY TRACT INFECTION
     Route: 048
     Dates: end: 20130630

REACTIONS (1)
  - Rhabdomyolysis [None]
